FAERS Safety Report 24143004 (Version 2)
Quarter: 2024Q3

REPORT INFORMATION
  Report Type: Report from Study
  Country: US (occurrence: US)
  Receive Date: 20240726
  Receipt Date: 20240904
  Transmission Date: 20241017
  Serious: Yes (Hospitalization, Other)
  Sender: ABBVIE
  Company Number: US-ABBVIE-5854141

PATIENT
  Age: 46 Year
  Sex: Female

DRUGS (1)
  1. SKYRIZI [Suspect]
     Active Substance: RISANKIZUMAB-RZAA
     Indication: Crohn^s disease
     Route: 058
     Dates: start: 20230208, end: 20240614

REACTIONS (5)
  - Illness [Recovering/Resolving]
  - Crohn^s disease [Not Recovered/Not Resolved]
  - Loss of consciousness [Unknown]
  - Drug ineffective [Unknown]
  - Weight decreased [Unknown]

NARRATIVE: CASE EVENT DATE: 20230208
